FAERS Safety Report 21451247 (Version 2)
Quarter: 2022Q4

REPORT INFORMATION
  Report Type: Spontaneous
  Country: IE (occurrence: IE)
  Receive Date: 20221013
  Receipt Date: 20221128
  Transmission Date: 20230113
  Serious: Yes (Other)
  Sender: FDA-Public Use
  Company Number: IE-OTSUKA-2022_047883

PATIENT
  Age: 65 Year
  Sex: Male

DRUGS (6)
  1. ABILIFY [Suspect]
     Active Substance: ARIPIPRAZOLE
     Indication: Bipolar disorder
     Dosage: 30 MG, QD
     Route: 065
  2. ABILIFY [Suspect]
     Active Substance: ARIPIPRAZOLE
     Dosage: 5 MG, QD (IN MORNING)
     Route: 065
  3. ABILIFY [Suspect]
     Active Substance: ARIPIPRAZOLE
     Dosage: 60 MG, QD
     Route: 065
     Dates: start: 202209
  4. ABILIFY [Suspect]
     Active Substance: ARIPIPRAZOLE
     Dosage: 70 MG, QD
     Route: 065
     Dates: start: 202209
  5. ABILIFY [Suspect]
     Active Substance: ARIPIPRAZOLE
     Dosage: 90 MG, QD
     Route: 065
     Dates: start: 202209
  6. ABILIFY [Suspect]
     Active Substance: ARIPIPRAZOLE
     Dosage: 105 MG, QD
     Route: 065
     Dates: start: 202209

REACTIONS (5)
  - Hallucination, visual [Unknown]
  - Hallucination, auditory [Unknown]
  - Energy increased [Unknown]
  - Drug ineffective [Unknown]
  - Overdose [Unknown]

NARRATIVE: CASE EVENT DATE: 20220901
